FAERS Safety Report 6092782-0 (Version None)
Quarter: 2009Q1

REPORT INFORMATION
  Report Type: 
  Country: None (occurrence: None)
  Receive Date: 20090225
  Receipt Date: 20090220
  Transmission Date: 20090719
  Serious: Yes (Other)
  Sender: FDA-Public Use
  Company Number: AU-WYE-H06048208

PATIENT
  Age: 70 Year

DRUGS (1)
  1. AMIODARONE [Suspect]
     Indication: ATRIAL FIBRILLATION
     Dosage: UNKNOWN
     Route: 042
     Dates: start: 20080820, end: 20080820

REACTIONS (6)
  - INFUSION SITE ERYTHEMA [None]
  - INFUSION SITE EXTRAVASATION [None]
  - INFUSION SITE MASS [None]
  - INFUSION SITE NECROSIS [None]
  - INFUSION SITE PHLEBITIS [None]
  - INFUSION SITE RASH [None]
